FAERS Safety Report 4715530-2 (Version None)
Quarter: 2005Q3

REPORT INFORMATION
  Report Type: 
  Country: None (occurrence: None)
  Receive Date: 20050718
  Receipt Date: 20050706
  Transmission Date: 20060218
  Serious: Yes (Hospitalization)
  Sender: FDA-Public Use
  Company Number: US-JNJFOC-20050301747

PATIENT
  Sex: Female
  Weight: 57.15 kg

DRUGS (5)
  1. REMICADE [Suspect]
     Route: 042
  2. REMICADE [Suspect]
     Route: 042
  3. ASACOL [Concomitant]
     Indication: COLITIS
  4. FOSAMAX [Concomitant]
     Indication: COLITIS
  5. FOLIC ACID [Concomitant]
     Indication: COLITIS

REACTIONS (3)
  - BURNING SENSATION [None]
  - CHEST PAIN [None]
  - INFUSION RELATED REACTION [None]
